FAERS Safety Report 22306842 (Version 1)
Quarter: 2023Q2

REPORT INFORMATION
  Report Type: Spontaneous
  Country: JP (occurrence: JP)
  Receive Date: 20230511
  Receipt Date: 20230511
  Transmission Date: 20230722
  Serious: Yes (Other)
  Sender: FDA-Public Use
  Company Number: JP-ASTELLAS-2023JP005380

PATIENT
  Age: 60 Year
  Sex: Female

DRUGS (6)
  1. TACROLIMUS [Suspect]
     Active Substance: TACROLIMUS
     Indication: Dermatomyositis
     Dosage: UNK UNK, UNKNOWN FREQ.
     Route: 065
  2. TACROLIMUS [Suspect]
     Active Substance: TACROLIMUS
     Indication: Interstitial lung disease
  3. PREDNISOLONE [Suspect]
     Active Substance: PREDNISOLONE
     Indication: Dermatomyositis
     Route: 065
  4. PREDNISOLONE [Suspect]
     Active Substance: PREDNISOLONE
     Indication: Interstitial lung disease
  5. CYCLOPHOSPHAMIDE [Suspect]
     Active Substance: CYCLOPHOSPHAMIDE
     Indication: Dermatomyositis
     Dosage: UNK UNK, UNKNOWN FREQ.
     Route: 042
  6. CYCLOPHOSPHAMIDE [Suspect]
     Active Substance: CYCLOPHOSPHAMIDE
     Indication: Interstitial lung disease

REACTIONS (4)
  - Pulmonary mass [Unknown]
  - Hepatic mass [Unknown]
  - Cytomegalovirus infection [Unknown]
  - Cytomegalovirus chorioretinitis [Recovering/Resolving]
